FAERS Safety Report 23863912 (Version 1)
Quarter: 2024Q2

REPORT INFORMATION
  Report Type: Spontaneous
  Country: US (occurrence: US)
  Receive Date: 20240516
  Receipt Date: 20240516
  Transmission Date: 20240716
  Serious: No
  Sender: FDA-Public Use
  Company Number: US-BIOGEN-2020BI00858100

PATIENT
  Age: 32 Year
  Sex: Female

DRUGS (2)
  1. TECFIDERA [Suspect]
     Active Substance: DIMETHYL FUMARATE
     Indication: Multiple sclerosis
     Route: 050
     Dates: start: 20200327, end: 20200403
  2. TECFIDERA [Suspect]
     Active Substance: DIMETHYL FUMARATE
     Route: 050
     Dates: start: 20200404, end: 20211025

REACTIONS (10)
  - Product dose omission issue [Not Recovered/Not Resolved]
  - Paraesthesia [Unknown]
  - Fatigue [Unknown]
  - Hypoaesthesia [Unknown]
  - Memory impairment [Unknown]
  - Muscle spasms [Unknown]
  - Insomnia [Unknown]
  - Vomiting [Unknown]
  - Abdominal pain upper [Unknown]
  - Flushing [Not Recovered/Not Resolved]

NARRATIVE: CASE EVENT DATE: 20200328
